FAERS Safety Report 17832324 (Version 1)
Quarter: 2020Q2

REPORT INFORMATION
  Report Type: Spontaneous
  Country: MY (occurrence: MY)
  Receive Date: 20200528
  Receipt Date: 20200528
  Transmission Date: 20200714
  Serious: Yes (Life-Threatening, Other)
  Sender: FDA-Public Use
  Company Number: MY-ALVOGEN-2020-ALVOGEN-108481

PATIENT
  Age: 34 Year
  Sex: Female

DRUGS (3)
  1. ACETYLCYSTEINE. [Suspect]
     Active Substance: ACETYLCYSTEINE
     Indication: DRUG-INDUCED LIVER INJURY
     Dosage: OVER 1 HOUR
  2. ACETYLCYSTEINE. [Suspect]
     Active Substance: ACETYLCYSTEINE
     Indication: OVERDOSE
     Dosage: OVER 1 HOUR
  3. PARACETAMOL [Concomitant]
     Active Substance: ACETAMINOPHEN
     Indication: SUICIDE ATTEMPT
     Dosage: INGESTED 50 TABLETS OF?500 MG ACETAMINOPHEN
     Route: 048

REACTIONS (1)
  - Anaphylactic shock [Recovered/Resolved]
